FAERS Safety Report 24696823 (Version 5)
Quarter: 2025Q1

REPORT INFORMATION
  Report Type: Report from Study
  Country: FR (occurrence: FR)
  Receive Date: 20241204
  Receipt Date: 20250326
  Transmission Date: 20250409
  Serious: Yes (Life-Threatening, Hospitalization, Other)
  Sender: PFIZER
  Company Number: FR-PFM-2024-04324

PATIENT
  Age: 75 Year
  Sex: Male
  Weight: 86.1 kg

DRUGS (17)
  1. ENCORAFENIB [Suspect]
     Active Substance: ENCORAFENIB
     Indication: Metastatic malignant melanoma
     Dosage: 450 MG DAILY
     Route: 065
     Dates: start: 20240629, end: 20240703
  2. ENCORAFENIB [Suspect]
     Active Substance: ENCORAFENIB
     Dosage: 450 MG DAILY
     Route: 065
     Dates: start: 20240709, end: 20240731
  3. ENCORAFENIB [Suspect]
     Active Substance: ENCORAFENIB
     Dosage: 450 MG DAILY
     Route: 065
     Dates: start: 20240806, end: 20240830
  4. BINIMETINIB [Suspect]
     Active Substance: BINIMETINIB
     Indication: Metastatic malignant melanoma
     Dosage: 90 MG, DAILY
     Route: 065
     Dates: start: 20240629, end: 20240703
  5. BINIMETINIB [Suspect]
     Active Substance: BINIMETINIB
     Dosage: 90 MG DAILY
     Route: 065
     Dates: start: 20240709, end: 20240731
  6. BINIMETINIB [Suspect]
     Active Substance: BINIMETINIB
     Dosage: 90 MG DAILY
     Route: 065
     Dates: start: 20240806, end: 20240830
  7. LANSOPRAZOLE [Concomitant]
     Active Substance: LANSOPRAZOLE
     Indication: Prophylaxis
     Dosage: 30 MG DAILY
     Route: 065
     Dates: start: 20240626, end: 20241124
  8. JANUVIA [Concomitant]
     Active Substance: SITAGLIPTIN PHOSPHATE
     Indication: Diabetes mellitus
     Dosage: 100 MG, DAILY
     Route: 065
     Dates: start: 20230421, end: 20241124
  9. FLUINDIONE [Concomitant]
     Active Substance: FLUINDIONE
     Indication: Ischaemic cardiomyopathy
     Dosage: 20 MG, DAILY
     Route: 065
     Dates: start: 20220413
  10. KARDEGIC [Concomitant]
     Active Substance: ASPIRIN DL-LYSINE
     Indication: Ischaemic cardiomyopathy
     Dosage: 75 MG, DAILY
     Route: 065
     Dates: start: 20240626, end: 20241124
  11. AMIODARONE HYDROCHLORIDE [Concomitant]
     Active Substance: AMIODARONE HYDROCHLORIDE
     Indication: Ischaemic cardiomyopathy
     Route: 065
     Dates: start: 20220413
  12. CANDESARTAN CILEXETIL [Concomitant]
     Active Substance: CANDESARTAN CILEXETIL
     Indication: Hypertension
     Dosage: 4 MG DAILY
     Route: 065
     Dates: start: 20240626, end: 20240813
  13. ROSUVASTATIN CALCIUM [Concomitant]
     Active Substance: ROSUVASTATIN CALCIUM
     Indication: Hypercholesterolaemia
     Dosage: 10 MG, DAILY
     Route: 065
     Dates: start: 20240626
  14. TAMSULOSIN HYDROCHLORIDE [Concomitant]
     Active Substance: TAMSULOSIN HYDROCHLORIDE
     Indication: Benign prostatic hyperplasia
     Dosage: 0.4 MG, DAILY
     Route: 065
     Dates: start: 20240626
  15. PREGABALIN [Concomitant]
     Active Substance: PREGABALIN
     Indication: Pain
     Dosage: 25 MG, TID (3/DAY)
     Route: 065
     Dates: start: 20240626
  16. LEVETIRACETAM [Concomitant]
     Active Substance: LEVETIRACETAM
     Indication: Prophylaxis
     Dosage: 500 MG, BID (2/DAY)
     Route: 065
     Dates: start: 20240626
  17. ACYCLOVIR [Concomitant]
     Active Substance: ACYCLOVIR
     Indication: Prophylaxis
     Dosage: 4 APPLICATION PER DAY
     Route: 065
     Dates: start: 20240626, end: 20240719

REACTIONS (4)
  - Gastrointestinal haemorrhage [Recovered/Resolved]
  - COVID-19 pneumonia [Recovered/Resolved]
  - Sepsis [Recovered/Resolved]
  - Product administration interrupted [Unknown]

NARRATIVE: CASE EVENT DATE: 20240703
